FAERS Safety Report 5963791-4 (Version None)
Quarter: 2008Q4

REPORT INFORMATION
  Report Type: 
  Country: None (occurrence: None)
  Receive Date: 20081120
  Receipt Date: 20081106
  Transmission Date: 20090506
  Serious: Yes (Hospitalization)
  Sender: FDA-Public Use
  Company Number: 20080317

PATIENT
  Age: 24 Year
  Sex: Female

DRUGS (2)
  1. VENOFER [Suspect]
     Indication: IRON DEFICIENCY ANAEMIA
     Dosage: 200 MG, 1 IN 1 D INTRAVENOUS DRIP
     Route: 041
     Dates: start: 20081015, end: 20081017
  2. DEEP PROVERA (AMP 1M) (DEPOT MEDROXYPROGESTERONE ACETATE) [Concomitant]

REACTIONS (4)
  - INFUSION SITE PAIN [None]
  - INFUSION SITE SWELLING [None]
  - VENOUS THROMBOSIS LIMB [None]
  - WRONG TECHNIQUE IN DRUG USAGE PROCESS [None]
